FAERS Safety Report 6187483-4 (Version None)
Quarter: 2009Q2

REPORT INFORMATION
  Report Type: 
  Country: None (occurrence: None)
  Receive Date: 20090512
  Receipt Date: 20090507
  Transmission Date: 20091009
  Serious: Yes (Death, Life-Threatening, Hospitalization)
  Sender: FDA-Public Use
  Company Number: CA-CELGENEUS-028-C5013-08020718

PATIENT
  Sex: Female
  Weight: 62.5 kg

DRUGS (9)
  1. CC-5013 [Suspect]
     Indication: NON-HODGKIN'S LYMPHOMA
     Route: 048
     Dates: start: 20070926, end: 20080209
  2. VANCOMYCIN HCL [Concomitant]
     Indication: NEUTROPENIA
     Route: 065
     Dates: start: 20080101, end: 20080101
  3. FLUCONAZOLE [Concomitant]
     Indication: NEUTROPENIA
     Route: 065
     Dates: start: 20080101, end: 20080101
  4. TOBRAMYCIN [Concomitant]
     Indication: NEUTROPENIA
     Route: 065
     Dates: start: 20080101, end: 20080101
  5. ANCEF [Concomitant]
     Indication: DRUG USE FOR UNKNOWN INDICATION
     Route: 065
     Dates: start: 20080101, end: 20080101
  6. ACYCLOVIR [Concomitant]
     Indication: NEUTROPENIA
     Route: 065
     Dates: start: 20080101, end: 20080101
  7. NEUPOGEN [Concomitant]
     Indication: NEUTROPENIA
     Route: 058
     Dates: start: 20071022, end: 20071001
  8. NEUPOGEN [Concomitant]
     Route: 058
     Dates: start: 20071116, end: 20071101
  9. NEUPOGEN [Concomitant]
     Route: 058
     Dates: start: 20071214, end: 20071201

REACTIONS (1)
  - ACUTE MYELOID LEUKAEMIA [None]
